FAERS Safety Report 17721792 (Version 2)
Quarter: 2020Q3

REPORT INFORMATION
  Report Type: Spontaneous
  Country: SE (occurrence: SE)
  Receive Date: 20200429
  Receipt Date: 20200824
  Transmission Date: 20201102
  Serious: Yes (Hospitalization)
  Sender: FDA-Public Use
  Company Number: SE-GLAXOSMITHKLINE-SE2019EME169493

PATIENT
  Sex: Female
  Weight: 70 kg

DRUGS (8)
  1. DOLUTEGRAVIR [Suspect]
     Active Substance: DOLUTEGRAVIR
     Indication: HIV INFECTION
     Dosage: 50 MG
     Dates: start: 20190208
  2. OMEPRAZOLE. [Suspect]
     Active Substance: OMEPRAZOLE
     Indication: GASTRITIS
     Dosage: UNK, 1 AS NEEDED
  3. LERGIGAN (PROMETHAZINE HYDROCHLORIDE) [Suspect]
     Active Substance: PROMETHAZINE HYDROCHLORIDE
     Indication: PRURITUS
     Dosage: 25 MG
     Dates: start: 20200207, end: 20200225
  4. DIVISUN [Suspect]
     Active Substance: CHOLECALCIFEROL
     Indication: VITAMIN D DEFICIENCY
     Dosage: 800 IU, 1D
     Dates: start: 20181213
  5. TAVEGYL [Suspect]
     Active Substance: CLEMASTINE FUMARATE
     Indication: PRURITUS
     Dosage: 1 MG
     Dates: start: 20200207, end: 20200225
  6. ABACAVIR. [Suspect]
     Active Substance: ABACAVIR
     Indication: HIV INFECTION
     Dosage: 600 MG
     Dates: start: 20190208
  7. KIVEXA [Suspect]
     Active Substance: ABACAVIR SULFATE\LAMIVUDINE
     Indication: HIV INFECTION
     Dosage: 1 DF
     Dates: start: 20181003
  8. LAMIVUDINE. [Suspect]
     Active Substance: LAMIVUDINE
     Indication: HIV INFECTION
     Dosage: 300 MG
     Dates: start: 20190208

REACTIONS (2)
  - Postpartum haemorrhage [Unknown]
  - Exposure during pregnancy [Unknown]
